FAERS Safety Report 8265382-1 (Version None)
Quarter: 2012Q2

REPORT INFORMATION
  Report Type: 
  Country: None (occurrence: None)
  Receive Date: 20120406
  Receipt Date: 20120323
  Transmission Date: 20120825
  Serious: Yes (Hospitalization)
  Sender: FDA-Public Use
  Company Number: JP-WATSON-2012-03461

PATIENT
  Sex: Male

DRUGS (12)
  1. JUVELA                             /00110502/ [Concomitant]
     Indication: DYSLIPIDAEMIA
     Dosage: 200 MG, DAILY
     Route: 048
  2. RIZE                               /00624801/ [Concomitant]
     Indication: ANXIETY DISORDER
     Dosage: 10 MG, DAILY
     Route: 048
  3. NEUER [Concomitant]
     Indication: PRODUCT USED FOR UNKNOWN INDICATION
     Dosage: UNK
     Route: 048
  4. METHYCOBAL [Concomitant]
     Indication: NEUROPATHY PERIPHERAL
     Dosage: 1000 MCG, DAILY
     Route: 048
  5. TEGRETOL [Concomitant]
     Indication: EPILEPSY
     Dosage: 200 MG, DAILY
     Route: 048
  6. MUCOSTA [Concomitant]
     Indication: GASTRITIS
     Dosage: 200 MG, DAILY
     Route: 048
  7. PURSENNIDE [Concomitant]
     Indication: CONSTIPATION
     Dosage: 12 MG, DAILY
     Route: 048
  8. LOSARTAN POTASSIUM [Concomitant]
     Indication: HYPERTENSION
     Dosage: 50 MG, DAILY
     Route: 048
     Dates: start: 20110204
  9. ANGINAL                            /00042901/ [Concomitant]
     Indication: PRODUCT USED FOR UNKNOWN INDICATION
     Dosage: UNK
     Route: 048
  10. ASPIRIN [Concomitant]
     Indication: MYOCARDIAL INFARCTION
     Dosage: 100 MG, DAILY
     Route: 048
     Dates: start: 20030101
  11. PRAVASTATIN [Concomitant]
     Indication: DYSLIPIDAEMIA
     Dosage: 10 MG, DAILY
     Route: 048
     Dates: start: 20030101
  12. RAPAFLO [Suspect]
     Indication: BENIGN PROSTATIC HYPERPLASIA
     Dosage: 8 MG, DAILY
     Route: 048
     Dates: start: 20111125, end: 20111229

REACTIONS (1)
  - LOSS OF CONSCIOUSNESS [None]
